FAERS Safety Report 20751999 (Version 7)
Quarter: 2023Q2

REPORT INFORMATION
  Report Type: Report from Study
  Country: CN (occurrence: CN)
  Receive Date: 20220426
  Receipt Date: 20230504
  Transmission Date: 20230722
  Serious: Yes (Hospitalization)
  Sender: FDA-Public Use
  Company Number: CN-JNJFOC-20220401421

PATIENT
  Age: 50 Year
  Sex: Female
  Weight: 54 kg

DRUGS (21)
  1. AMIVANTAMAB [Suspect]
     Active Substance: AMIVANTAMAB
     Indication: Non-small cell lung cancer metastatic
     Route: 042
     Dates: start: 20211209, end: 20220315
  2. ECONAZOLE NITRATE\TRIAMCINOLONE [Concomitant]
     Active Substance: ECONAZOLE NITRATE\TRIAMCINOLONE
     Indication: Prophylaxis
     Route: 061
     Dates: start: 20211216, end: 20220515
  3. ERGOCALCIFEROL [Concomitant]
     Active Substance: ERGOCALCIFEROL
     Indication: Mineral supplementation
     Route: 048
     Dates: start: 20220107, end: 20220930
  4. DESONIDE [Concomitant]
     Active Substance: DESONIDE
     Indication: Rash
     Route: 061
     Dates: start: 20220109, end: 20220515
  5. METFORMIN HYDROCHLORIDE [Concomitant]
     Active Substance: METFORMIN HYDROCHLORIDE
     Indication: Glucose tolerance impaired
     Route: 048
     Dates: start: 20220219
  6. METFORMIN HYDROCHLORIDE [Concomitant]
     Active Substance: METFORMIN HYDROCHLORIDE
     Indication: Hyperglycaemia
  7. DUPHALAC [Concomitant]
     Active Substance: LACTULOSE
     Indication: Haemorrhoids
     Route: 048
     Dates: start: 20220420, end: 20220721
  8. DIOSMIN [Concomitant]
     Active Substance: DIOSMIN
     Indication: Haemorrhoids
     Route: 048
     Dates: start: 20220426, end: 20220515
  9. BEAR BILE [Concomitant]
     Indication: Haemorrhoids
     Route: 054
     Dates: start: 20220426, end: 20220515
  10. CHLORTETRACYCLINE HYDROCHLORIDE [Concomitant]
     Active Substance: CHLORTETRACYCLINE HYDROCHLORIDE
     Indication: Haemorrhoids
     Route: 061
     Dates: start: 20220426, end: 20220515
  11. TRADITIONAL CHINESE MEDICINE (TCM) DECOCTION [Concomitant]
     Indication: Haemorrhoids
     Route: 054
     Dates: start: 20220426, end: 20220515
  12. FRUCTUS SOPHORAE [Concomitant]
     Indication: Haemorrhoids
     Route: 048
     Dates: start: 20220512, end: 20220513
  13. XGEVA [Concomitant]
     Active Substance: DENOSUMAB
     Indication: Prophylaxis
     Route: 058
     Dates: start: 20220426, end: 20220426
  14. XGEVA [Concomitant]
     Active Substance: DENOSUMAB
     Route: 058
     Dates: start: 20220522, end: 20220522
  15. XGEVA [Concomitant]
     Active Substance: DENOSUMAB
     Route: 058
     Dates: start: 20220724, end: 20220724
  16. XGEVA [Concomitant]
     Active Substance: DENOSUMAB
     Route: 058
     Dates: start: 20230117
  17. XGEVA [Concomitant]
     Active Substance: DENOSUMAB
     Route: 058
     Dates: start: 20230218
  18. XGEVA [Concomitant]
     Active Substance: DENOSUMAB
     Route: 058
     Dates: start: 20230319
  19. CALCIUM CARBONATE\CHOLECALCIFEROL [Concomitant]
     Active Substance: CALCIUM CARBONATE\CHOLECALCIFEROL
     Indication: Mineral supplementation
     Route: 048
     Dates: start: 20211123
  20. NITROGLYCERIN [Concomitant]
     Active Substance: NITROGLYCERIN
     Indication: Haemorrhoids
     Route: 061
     Dates: start: 20220713, end: 20220810
  21. CALCIUM CARBONATE\CHOLECALCIFEROL [Concomitant]
     Active Substance: CALCIUM CARBONATE\CHOLECALCIFEROL
     Route: 048
     Dates: start: 20211123

REACTIONS (2)
  - Pulmonary embolism [Recovered/Resolved]
  - Venous thrombosis limb [Not Recovered/Not Resolved]

NARRATIVE: CASE EVENT DATE: 20220330
